FAERS Safety Report 7872933 (Version 18)
Quarter: 2012Q4

REPORT INFORMATION
  Report Type: 
  Country: US (occurrence: US)
  Receive Date: 20110325
  Receipt Date: 20120913
  Transmission Date: 20130627
  Serious: Yes (Hospitalization, Other)
  Sender: FDA-Public Use
  Company Number: US-ASTRAZENECA-2011SE15304

PATIENT
  Age: 60 Year
  Sex: Female

DRUGS (20)
  1. TOPROL XL [Suspect]
     Route: 048
  2. TOPROL XL [Suspect]
     Route: 048
  3. TOPROL XL [Suspect]
     Route: 048
     Dates: start: 20111118
  4. TOPROL XL [Suspect]
     Route: 048
     Dates: start: 20110623
  5. TOPROL XL [Suspect]
     Route: 048
     Dates: start: 20110316
  6. TOPROL XL [Suspect]
     Route: 048
  7. UNSPECIFIED [Suspect]
     Route: 065
  8. LANTUS [Concomitant]
  9. FUROSEMIDE [Concomitant]
  10. LIDOCAINE [Concomitant]
  11. POTASSIUM [Concomitant]
  12. PROZAC [Concomitant]
  13. WATER PILL [Concomitant]
     Route: 065
  14. 20 OTHER MEDICATIONS [Concomitant]
     Route: 065
  15. VARIOUS VITAMINS [Concomitant]
     Route: 065
  16. OXYCODONE [Concomitant]
     Route: 065
  17. OXYCONTIN [Concomitant]
     Route: 065
  18. PERCOCET [Concomitant]
     Route: 065
  19. ANESTHESIA [Concomitant]
     Route: 065
  20. STEROID INJECTIONS [Concomitant]

REACTIONS (44)
  - Skin cancer [Unknown]
  - Nerve injury [Unknown]
  - Intervertebral disc protrusion [Unknown]
  - Cyst [Unknown]
  - Meniscus injury [Unknown]
  - Road traffic accident [Unknown]
  - Mobility decreased [Unknown]
  - Brain injury [Unknown]
  - Head injury [Unknown]
  - Brain compression [Unknown]
  - Cataract [Unknown]
  - Malaise [Unknown]
  - Cervical vertebral fracture [Unknown]
  - Loss of consciousness [Unknown]
  - Pain [Unknown]
  - Spondylitis [Unknown]
  - Fibromyalgia [Unknown]
  - Weight decreased [Unknown]
  - Pleuritic pain [Unknown]
  - Diabetes mellitus inadequate control [Unknown]
  - Arthritis [Unknown]
  - Hyperphagia [Unknown]
  - Bronchopneumonia [Unknown]
  - Grip strength decreased [Unknown]
  - Malaise [Unknown]
  - Viral infection [Unknown]
  - Bronchitis [Unknown]
  - Diabetes mellitus [Unknown]
  - Hypertension [Unknown]
  - Adverse event [Unknown]
  - Muscle spasms [Unknown]
  - Muscle spasms [Unknown]
  - Deafness [Unknown]
  - Hypoacusis [Unknown]
  - Musculoskeletal discomfort [Unknown]
  - Visual impairment [Unknown]
  - Headache [Unknown]
  - Rash macular [Unknown]
  - Confusional state [Unknown]
  - Memory impairment [Unknown]
  - Dizziness [Unknown]
  - Drug ineffective [Unknown]
  - Circumstance or information capable of leading to medication error [Unknown]
  - Drug dose omission [Unknown]
